FAERS Safety Report 7285083-6 (Version None)
Quarter: 2011Q1

REPORT INFORMATION
  Report Type: 
  Country: None (occurrence: None)
  Receive Date: 20110204
  Receipt Date: 20110204
  Transmission Date: 20110831
  Serious: Yes (Disabling)
  Sender: FDA-Public Use
  Company Number: None

PATIENT
  Age: 64 Year
  Sex: Female
  Weight: 154.223 kg

DRUGS (1)
  1. GOLYTELY [Suspect]
     Dosage: 5 LITERS
     Dates: start: 20080101

REACTIONS (1)
  - RETINAL DETACHMENT [None]
